FAERS Safety Report 5594174-7 (Version None)
Quarter: 2008Q1

REPORT INFORMATION
  Report Type: 
  Country: None (occurrence: None)
  Receive Date: 20080107
  Receipt Date: 20071231
  Transmission Date: 20080703
  Serious: No
  Sender: FDA-Public Use
  Company Number: AEUSA200700222

PATIENT
  Age: 29 Year
  Sex: Male
  Weight: 99.7913 kg

DRUGS (4)
  1. GAMUNEX [Suspect]
     Indication: IMMUNODEFICIENCY COMMON VARIABLE
     Dosage: 40 GM; Q4W; IV
     Route: 042
     Dates: start: 19990101, end: 20070601
  2. SULFAMETHOXAZOLE [Concomitant]
  3. TRIMETHOPRIM [Concomitant]
  4. ALLEGRA [Concomitant]

REACTIONS (1)
  - HERPES SIMPLEX SEROLOGY POSITIVE [None]
